FAERS Safety Report 9690633 (Version 1)
Quarter: 2013Q4

REPORT INFORMATION
  Report Type: Spontaneous
  Country: US (occurrence: None)
  Receive Date: 20131114
  Receipt Date: 20131114
  Transmission Date: 20140711
  Serious: Yes (Other)
  Sender: FDA-Public Use
  Company Number: None

PATIENT
  Age: 52 Year
  Sex: Female

DRUGS (7)
  1. TELAPREVIR [Suspect]
     Indication: HEPATITIS C
     Dosage: 3 TABS
     Route: 048
  2. FLEXERIL 10 MG [Concomitant]
  3. PEG INTERFERON 180 MCG [Concomitant]
  4. RIBAVIRIN 200 MG [Concomitant]
  5. HYDROXYZINE 50 MG [Concomitant]
  6. HYDROCORTISONE CREAM [Concomitant]
  7. FAMOTIDINE 20 MG [Concomitant]

REACTIONS (4)
  - Rash [None]
  - Pruritus [None]
  - Pain [None]
  - Rash erythematous [None]
